FAERS Safety Report 19073084 (Version 1)
Quarter: 2021Q1

REPORT INFORMATION
  Report Type: Spontaneous
  Country: CZ (occurrence: CZ)
  Receive Date: 20210330
  Receipt Date: 20210330
  Transmission Date: 20210420
  Serious: Yes (Other)
  Sender: FDA-Public Use
  Company Number: NVSC2021CZ068596

PATIENT
  Sex: Female

DRUGS (6)
  1. TRAMADOL. [Concomitant]
     Active Substance: TRAMADOL
     Indication: ARTHRALGIA
     Dosage: UNK
     Route: 065
     Dates: end: 202008
  2. CALCIUM [Concomitant]
     Active Substance: CALCIUM
     Indication: PRODUCT USED FOR UNKNOWN INDICATION
     Dosage: UNK
     Route: 065
  3. KISQALI [Suspect]
     Active Substance: RIBOCICLIB
     Indication: BREAST CANCER
     Dosage: 200 MG, QD (DAILY WITH ONCE WEEK PAUSE 3?0?0) (FOR THREE WEEKS, WITH A ONE?WEEK BREAK)
     Route: 065
     Dates: start: 20200628
  4. ANASTROZOLE. [Concomitant]
     Active Substance: ANASTROZOLE
     Indication: PRODUCT USED FOR UNKNOWN INDICATION
     Dosage: UNK
     Route: 065
  5. DENOSUMAB [Concomitant]
     Active Substance: DENOSUMAB
     Indication: PRODUCT USED FOR UNKNOWN INDICATION
     Dosage: UNK
     Route: 065
  6. KISQALI [Suspect]
     Active Substance: RIBOCICLIB
     Dosage: 200 MG, QD (DAILY WITH ONCE WEEK PAUSE 2?0?0)
     Route: 065
     Dates: start: 202011

REACTIONS (2)
  - Leukopenia [Recovering/Resolving]
  - Aphthous ulcer [Recovered/Resolved]
